FAERS Safety Report 13220938 (Version 1)
Quarter: 2017Q1

REPORT INFORMATION
  Report Type: Other
  Country: US (occurrence: US)
  Receive Date: 20170211
  Receipt Date: 20170211
  Transmission Date: 20170428
  Serious: No
  Sender: FDA-Public Use
  Company Number: US-ACORDA-ACO_129753_2016

PATIENT
  Age: 45 Year
  Sex: Female
  Weight: 54.42 kg

DRUGS (9)
  1. AMPYRA [Suspect]
     Active Substance: DALFAMPRIDINE
     Indication: GAIT DISTURBANCE
     Dosage: 10 MG, Q 12 HRS
     Route: 048
  2. AMBIEN [Concomitant]
     Active Substance: ZOLPIDEM TARTRATE
     Indication: PRODUCT USED FOR UNKNOWN INDICATION
     Dosage: UNK
  3. AMPYRA [Suspect]
     Active Substance: DALFAMPRIDINE
     Dosage: 10 MG, Q 12 HRS
     Route: 048
     Dates: start: 201609
  4. AMPYRA [Suspect]
     Active Substance: DALFAMPRIDINE
     Dosage: 5 MG DAILY
     Route: 048
     Dates: start: 201609
  5. AMANTADINE [Concomitant]
     Active Substance: AMANTADINE
     Indication: PRODUCT USED FOR UNKNOWN INDICATION
     Dosage: UNK
  6. AMPYRA [Suspect]
     Active Substance: DALFAMPRIDINE
     Dosage: 10 MG QD X7 DAYS
     Dates: start: 20161025, end: 20161102
  7. EFFEXOR [Concomitant]
     Active Substance: VENLAFAXINE HYDROCHLORIDE
     Indication: PRODUCT USED FOR UNKNOWN INDICATION
     Dosage: UNK
  8. BACLOFEN. [Concomitant]
     Active Substance: BACLOFEN
     Indication: PRODUCT USED FOR UNKNOWN INDICATION
     Dosage: UNK
  9. AMPYRA [Suspect]
     Active Substance: DALFAMPRIDINE
     Dosage: 10 MG Q12HRS
     Route: 048
     Dates: start: 2016

REACTIONS (7)
  - Abdominal discomfort [Unknown]
  - Fall [Unknown]
  - Influenza like illness [Recovered/Resolved]
  - Dizziness [Not Recovered/Not Resolved]
  - Nephrolithiasis [Recovered/Resolved]
  - Palpitations [Unknown]
  - Blood urine present [Unknown]

NARRATIVE: CASE EVENT DATE: 2016
